APPROVED DRUG PRODUCT: LABETALOL HYDROCHLORIDE
Active Ingredient: LABETALOL HYDROCHLORIDE
Strength: 200MG
Dosage Form/Route: TABLET;ORAL
Application: A211325 | Product #002 | TE Code: AB
Applicant: CADILA PHARMACEUTICALS LTD
Approved: May 13, 2019 | RLD: No | RS: No | Type: RX